FAERS Safety Report 6585785-0 (Version None)
Quarter: 2010Q1

REPORT INFORMATION
  Report Type: 
  Country: None (occurrence: None)
  Receive Date: 20100217
  Receipt Date: 20100212
  Transmission Date: 20100710
  Serious: No
  Sender: FDA-Public Use
  Company Number: US-B.I. PHARMACEUTICALS,INC./RIDGEFIELD-2010-BP-01833BP

PATIENT
  Age: 48 Year
  Sex: Female

DRUGS (1)
  1. FLOMAX [Suspect]
     Indication: CYSTITIS
     Dosage: 0.4 MG
     Route: 048
     Dates: start: 20100208

REACTIONS (3)
  - BLADDER DISORDER [None]
  - FATIGUE [None]
  - FEELING ABNORMAL [None]
